FAERS Safety Report 6438186-X (Version None)
Quarter: 2009Q4

REPORT INFORMATION
  Report Type: 
  Country: None (occurrence: None)
  Receive Date: 20091112
  Receipt Date: 20091102
  Transmission Date: 20100525
  Serious: Yes (Other)
  Sender: FDA-Public Use
  Company Number: DK-ELI_LILLY_AND_COMPANY-DK200911000473

PATIENT
  Sex: Male
  Weight: 70 kg

DRUGS (1)
  1. FORTEO [Suspect]
     Indication: OSTEOPOROSIS
     Dosage: 20 UG, UNKNOWN
     Route: 065
     Dates: start: 20040525, end: 20051208

REACTIONS (9)
  - ALOPECIA [None]
  - CATARACT [None]
  - COLOUR BLINDNESS [None]
  - ERECTILE DYSFUNCTION [None]
  - HYPOACUSIS [None]
  - LUNG DISORDER [None]
  - MEMORY IMPAIRMENT [None]
  - TOOTH DISCOLOURATION [None]
  - TOOTH INJURY [None]
